FAERS Safety Report 9382218 (Version 2)
Quarter: 2013Q3

REPORT INFORMATION
  Report Type: Spontaneous
  Country: IL (occurrence: IL)
  Receive Date: 20130703
  Receipt Date: 20130813
  Transmission Date: 20140515
  Serious: Yes (Other)
  Sender: FDA-Public Use
  Company Number: IL-JNJFOC-20130617439

PATIENT
  Age: 66 Year
  Sex: Female

DRUGS (3)
  1. SIMPONI [Suspect]
     Indication: RHEUMATOID ARTHRITIS
     Route: 058
     Dates: start: 20130509
  2. SIMPONI [Suspect]
     Indication: RHEUMATOID ARTHRITIS
     Route: 058
     Dates: start: 20130709
  3. SIMPONI [Suspect]
     Indication: RHEUMATOID ARTHRITIS
     Dosage: SECOND INFUSION
     Route: 058
     Dates: start: 201305

REACTIONS (2)
  - Chest pain [Unknown]
  - Drug ineffective [Unknown]
